FAERS Safety Report 4837383-4 (Version None)
Quarter: 2005Q4

REPORT INFORMATION
  Report Type: 
  Country: None (occurrence: None)
  Receive Date: 20051122
  Receipt Date: 20051111
  Transmission Date: 20060501
  Serious: Yes (Hospitalization)
  Sender: FDA-Public Use
  Company Number: 2005120961

PATIENT
  Age: 73 Year
  Sex: Male

DRUGS (3)
  1. NORVASC [Suspect]
     Indication: ILL-DEFINED DISORDER
     Dosage: ORAL
     Route: 048
  2. ENALAPRIL MALEATE [Suspect]
     Indication: ILL-DEFINED DISORDER
  3. LEVOFLOXACIN [Suspect]
     Indication: ILL-DEFINED DISORDER

REACTIONS (4)
  - ANAEMIA [None]
  - CYTOMEGALOVIRUS ANTIGEN POSITIVE [None]
  - IMMUNOGLOBULINS DECREASED [None]
  - TOXIC EPIDERMAL NECROLYSIS [None]
